FAERS Safety Report 5083479-4 (Version None)
Quarter: 2006Q3

REPORT INFORMATION
  Report Type: 
  Country: None (occurrence: None)
  Receive Date: 20060814
  Receipt Date: 20060731
  Transmission Date: 20061208
  Serious: Yes (Hospitalization, Other)
  Sender: FDA-Public Use
  Company Number: 2006069068

PATIENT
  Age: 33 Year
  Sex: Female
  Weight: 63 kg

DRUGS (5)
  1. SALAZOPYRIN (SULFASALZINE) [Suspect]
     Indication: COLITIS ULCERATIVE
     Dosage: 9 GRAM (3 GRAM, 3 IN 1 D), ORAL
     Route: 048
     Dates: start: 19980101
  2. FLOMOX (CEFCAPENE PIVOXIL HYDROCHLORIDE) [Suspect]
     Indication: PNEUMONIA
     Dosage: 300 MG (100 MG, 3 IN 1 D), ORAL
     Route: 048
     Dates: start: 20060322, end: 20060330
  3. BIOFERMIN R (STREPTOCOCCUS FAECALIS) [Concomitant]
  4. MESALAMINE [Concomitant]
  5. ROCEPHIN [Concomitant]

REACTIONS (3)
  - PLEURAL EFFUSION [None]
  - PLEURISY [None]
  - PNEUMONIA [None]
